FAERS Safety Report 11228337 (Version 2)
Quarter: 2015Q3

REPORT INFORMATION
  Report Type: Spontaneous
  Country: JP (occurrence: JP)
  Receive Date: 20150630
  Receipt Date: 20150709
  Transmission Date: 20151125
  Serious: Yes (Other)
  Sender: FDA-Public Use
  Company Number: JP-009507513-1506JPN014812

PATIENT

DRUGS (2)
  1. LIPOVAS TABLETS 5 [Suspect]
     Active Substance: PRAVASTATIN SODIUM
     Dosage: DAILY DOSAGE UNKNOWN
     Route: 048
  2. ADALAT CC [Concomitant]
     Active Substance: NIFEDIPINE
     Dosage: DAILY DOSAGE UNKNOWN
     Route: 048

REACTIONS (1)
  - Aortic dissection [Unknown]

NARRATIVE: CASE EVENT DATE: 2002
